FAERS Safety Report 9715070 (Version 1)
Quarter: 2013Q4

REPORT INFORMATION
  Report Type: Spontaneous
  Country: US (occurrence: US)
  Receive Date: 20131126
  Receipt Date: 20131126
  Transmission Date: 20140711
  Serious: No
  Sender: FDA-Public Use
  Company Number: US-NOVEN-13US007920

PATIENT
  Age: 48 Year
  Sex: Female

DRUGS (2)
  1. MINIVELLE [Suspect]
     Indication: HOT FLUSH
     Dosage: 0.1 MG/QD, UNK
     Route: 062
     Dates: start: 201308
  2. ANTIHYPERTENSIVES [Concomitant]
     Indication: FLUID RETENTION
     Dosage: UNK
     Route: 048

REACTIONS (6)
  - Application site discolouration [Not Recovered/Not Resolved]
  - Application site pruritus [Recovered/Resolved]
  - Application site swelling [Recovered/Resolved]
  - Application site irritation [Recovered/Resolved]
  - Application site erythema [Recovered/Resolved]
  - Wrong technique in drug usage process [Unknown]
